FAERS Safety Report 4839910-X (Version None)
Quarter: 2005Q4

REPORT INFORMATION
  Report Type: 
  Country: None (occurrence: None)
  Receive Date: 20051129
  Receipt Date: 20051121
  Transmission Date: 20060501
  Serious: Yes (Hospitalization)
  Sender: FDA-Public Use
  Company Number: JP-ROCHE-425482

PATIENT
  Age: 42 Year
  Sex: Female

DRUGS (4)
  1. RIBAVIRIN [Suspect]
     Dosage: DAILY TREATMENT.
     Route: 065
  2. RIBAVIRIN [Suspect]
     Route: 065
  3. INTERFERON ALFA-2B [Suspect]
     Dosage: DAILY TREATMENT.
     Route: 065
  4. INTERFERON ALFA-2B [Suspect]
     Route: 065

REACTIONS (1)
  - IIIRD NERVE PARALYSIS [None]
